FAERS Safety Report 9316485 (Version 1)
Quarter: 2013Q2

REPORT INFORMATION
  Report Type: Spontaneous
  Country: US (occurrence: None)
  Receive Date: 20130528
  Receipt Date: 20130528
  Transmission Date: 20140414
  Serious: Yes (Hospitalization)
  Sender: FDA-Public Use
  Company Number: None

PATIENT
  Age: 7 Year
  Sex: Female
  Weight: 17.24 kg

DRUGS (3)
  1. EXJADE [Suspect]
     Indication: IRON OVERLOAD
     Route: 048
     Dates: start: 20071201, end: 20130521
  2. EXJADE [Suspect]
     Indication: TRANSFUSION RELATED COMPLICATION
     Route: 048
     Dates: start: 20071201, end: 20130521
  3. EXJADE [Concomitant]

REACTIONS (7)
  - Abdominal pain [None]
  - Haematochezia [None]
  - Haemoglobin decreased [None]
  - Renal disorder [None]
  - White blood cell count increased [None]
  - Pyrexia [None]
  - Dehydration [None]
